FAERS Safety Report 8337082-0 (Version None)
Quarter: 2012Q2

REPORT INFORMATION
  Report Type: 
  Country: None (occurrence: None)
  Receive Date: 20120504
  Receipt Date: 20110706
  Transmission Date: 20120825
  Serious: No
  Sender: FDA-Public Use
  Company Number: US-TEVA-2011003588

PATIENT
  Sex: Female
  Weight: 101.24 kg

DRUGS (7)
  1. HYDROXYZINE [Concomitant]
  2. CLONAZEPAM [Concomitant]
  3. NUVIGIL [Suspect]
     Indication: ATTENTION DEFICIT/HYPERACTIVITY DISORDER
     Dosage: 500 MILLIGRAM;
     Route: 048
  4. NUVIGIL [Suspect]
     Indication: SLEEP APNOEA SYNDROME
     Dosage: 250 MILLIGRAM;
     Route: 048
     Dates: start: 20110101, end: 20110630
  5. NEXIUM [Concomitant]
  6. ABILIFY [Concomitant]
     Dates: start: 20101201
  7. PRISTIQ [Concomitant]

REACTIONS (1)
  - ABSCESS ORAL [None]
